FAERS Safety Report 15361174 (Version 2)
Quarter: 2018Q4

REPORT INFORMATION
  Report Type: Report from Study
  Country: None (occurrence: BE)
  Receive Date: 20180907
  Receipt Date: 20181122
  Transmission Date: 20190204
  Serious: Yes (Hospitalization, Other)
  Sender: FDA-Public Use
  Company Number: BE-ABBVIE-18S-013-2473857-00

PATIENT
  Age: 73 Year
  Sex: Female

DRUGS (5)
  1. DUODOPA [Suspect]
     Active Substance: CARBIDOPA\LEVODOPA
     Dosage: MD= 7ML, CD= 3.9ML/HR DURING 16HRS, ED= 2ML
     Route: 050
     Dates: start: 20180903
  2. DUODOPA [Suspect]
     Active Substance: CARBIDOPA\LEVODOPA
     Dosage: MD= 7ML, CD= 4.1ML/HR DURING 16HRS, ED= 2ML
     Route: 050
     Dates: start: 20180717, end: 20180903
  3. DUODOPA [Suspect]
     Active Substance: CARBIDOPA\LEVODOPA
     Indication: PARKINSON^S DISEASE
     Dosage: MD= 11ML, CD= 3.5ML/HR DURING 16HRS, ED= 1.5ML
     Route: 050
     Dates: start: 20160725, end: 20160729
  4. DUODOPA [Suspect]
     Active Substance: CARBIDOPA\LEVODOPA
     Dosage: DOSES CONTINUOUSLY MONITORED AND ADAPTED
     Route: 050
     Dates: start: 20160729, end: 20180717
  5. ASAFLOW [Concomitant]
     Active Substance: ASPIRIN
     Indication: PRODUCT USED FOR UNKNOWN INDICATION

REACTIONS (8)
  - Paralysis [Recovering/Resolving]
  - Diplegia [Unknown]
  - Head injury [Recovered/Resolved]
  - Fall [Recovered/Resolved]
  - Neoplasm malignant [Unknown]
  - Cervical spinal stenosis [Unknown]
  - Spinal cord compression [Unknown]
  - General physical health deterioration [Unknown]

NARRATIVE: CASE EVENT DATE: 201808
